FAERS Safety Report 8331032-9 (Version None)
Quarter: 2012Q2

REPORT INFORMATION
  Report Type: 
  Country: None (occurrence: None)
  Receive Date: 20120502
  Receipt Date: 20120409
  Transmission Date: 20120825
  Serious: No
  Sender: FDA-Public Use
  Company Number: US-AMGEN-USASP2012000259

PATIENT
  Age: 54 Year
  Sex: Female

DRUGS (4)
  1. HYZAAR [Concomitant]
     Dosage: UNK
  2. ENBREL [Suspect]
     Indication: PSORIATIC ARTHROPATHY
     Dosage: 50 MG, QWK
     Route: 058
     Dates: start: 19991201
  3. FOLIC ACID [Concomitant]
     Dosage: 1 MG, QWK
     Route: 048
  4. METHOTREXATE [Concomitant]
     Indication: PSORIATIC ARTHROPATHY
     Dosage: 15 MG, QWK
     Route: 048

REACTIONS (7)
  - HERPES ZOSTER [None]
  - ARTHRALGIA [None]
  - RASH [None]
  - GAIT DISTURBANCE [None]
  - JOINT SWELLING [None]
  - BACK PAIN [None]
  - DRUG INEFFECTIVE [None]
